FAERS Safety Report 8775594 (Version 2)
Quarter: 2013Q4

REPORT INFORMATION
  Report Type: Spontaneous
  Country: US (occurrence: US)
  Receive Date: 20120909
  Receipt Date: 20131101
  Transmission Date: 20140711
  Serious: No
  Sender: FDA-Public Use
  Company Number: US-009507513-1209USA000322

PATIENT
  Sex: Female

DRUGS (2)
  1. REMERON [Suspect]
     Dosage: 7.5 MG, UNK
  2. REMERON [Suspect]
     Dosage: 15 MG, UNK

REACTIONS (1)
  - Weight decreased [Unknown]
